FAERS Safety Report 4878633-8 (Version None)
Quarter: 2005Q4

REPORT INFORMATION
  Report Type: 
  Country: None (occurrence: None)
  Receive Date: 20051214
  Receipt Date: 20050418
  Transmission Date: 20060501
  Serious: Yes (Hospitalization)
  Sender: FDA-Public Use
  Company Number: D-05-013

PATIENT
  Age: 90 Year
  Sex: Female

DRUGS (5)
  1. JANTOVEN [Suspect]
     Indication: ATRIAL FIBRILLATION
     Dosage: 4 MG QD PO
     Route: 048
     Dates: start: 20050330
  2. WARFARIN SODIUM [Suspect]
     Indication: ATRIAL FIBRILLATION
     Dosage: 4.5 MG QD PO
     Route: 048
     Dates: end: 20050329
  3. REQUIP (CONTIN) [Concomitant]
  4. SINEMET (CONTIN) [Concomitant]
  5. WELLBUTRIN (CONTIN) [Concomitant]

REACTIONS (1)
  - INTERNATIONAL NORMALISED RATIO INCREASED [None]
